FAERS Safety Report 21693238 (Version 1)
Quarter: 2022Q4

REPORT INFORMATION
  Report Type: Spontaneous
  Country: TR (occurrence: TR)
  Receive Date: 20221207
  Receipt Date: 20221207
  Transmission Date: 20230113
  Serious: Yes (Other)
  Sender: FDA-Public Use
  Company Number: TR-LGC-011375

PATIENT
  Sex: Female

DRUGS (1)
  1. FACTIVE [Suspect]
     Active Substance: GEMIFLOXACIN MESYLATE
     Route: 048

REACTIONS (6)
  - Pruritus [Not Recovered/Not Resolved]
  - Skin wound [Not Recovered/Not Resolved]
  - Eye haemorrhage [Not Recovered/Not Resolved]
  - Liver function test increased [Unknown]
  - Wound haemorrhage [Unknown]
  - Eye haemorrhage [Not Recovered/Not Resolved]
